FAERS Safety Report 18083853 (Version 2)
Quarter: 2020Q4

REPORT INFORMATION
  Report Type: Report from Study
  Country: US (occurrence: US)
  Receive Date: 20200729
  Receipt Date: 20201029
  Transmission Date: 20210113
  Serious: Yes (Other)
  Sender: FDA-Public Use
  Company Number: US-BIOVITRUM-2019US3252

PATIENT
  Age: 54 Year
  Sex: Female

DRUGS (1)
  1. KINERET [Suspect]
     Active Substance: ANAKINRA
     Indication: STILL^S DISEASE
     Route: 058
     Dates: start: 20190606

REACTIONS (5)
  - Skin cancer [Unknown]
  - Off label use [Unknown]
  - Intentional product misuse [Unknown]
  - Basal cell carcinoma [Unknown]
  - Infection [Unknown]

NARRATIVE: CASE EVENT DATE: 20190606
